FAERS Safety Report 25419051 (Version 4)
Quarter: 2025Q3

REPORT INFORMATION
  Report Type: Spontaneous
  Country: AR (occurrence: AR)
  Receive Date: 20250610
  Receipt Date: 20250717
  Transmission Date: 20251020
  Serious: No
  Sender: PFIZER
  Company Number: AR-PFIZER INC-202500106782

PATIENT
  Age: 11 Year
  Sex: Male

DRUGS (1)
  1. GENOTROPIN [Suspect]
     Active Substance: SOMATROPIN
     Indication: Short stature
     Dosage: 2 MG, DAILY, 7 TIMES A WEEK
     Dates: start: 20221020

REACTIONS (2)
  - Device physical property issue [Recovered/Resolved]
  - Device operational issue [Recovered/Resolved]

NARRATIVE: CASE EVENT DATE: 20250515
